FAERS Safety Report 7490865-1 (Version None)
Quarter: 2011Q2

REPORT INFORMATION
  Report Type: 
  Country: None (occurrence: None)
  Receive Date: 20110517
  Receipt Date: 20110517
  Transmission Date: 20111010
  Serious: Yes (Hospitalization, Other)
  Sender: FDA-Public Use
  Company Number: None

PATIENT
  Age: 9 Year
  Sex: Female
  Weight: 43.0917 kg

DRUGS (2)
  1. ZYTERC [Concomitant]
  2. SINGULAIR [Suspect]
     Indication: SEASONAL ALLERGY
     Dosage: 5MG 1XDAILY
     Dates: start: 20110301, end: 20110501

REACTIONS (8)
  - IRRITABILITY [None]
  - AGGRESSION [None]
  - CRYING [None]
  - SUICIDAL IDEATION [None]
  - EYE DISORDER [None]
  - SCRATCH [None]
  - SELF INJURIOUS BEHAVIOUR [None]
  - ANGER [None]
